FAERS Safety Report 8305956-2 (Version None)
Quarter: 2012Q1

REPORT INFORMATION
  Report Type: 
  Country: None (occurrence: None)
  Receive Date: 20120327
  Receipt Date: 20091116
  Transmission Date: 20120608
  Serious: Yes (Other)
  Sender: FDA-Public Use
  Company Number: PHEH2009US16056

PATIENT
  Sex: Male
  Weight: 89.7 kg

DRUGS (3)
  1. AVALIDE [Concomitant]
  2. DARVOCET-N (DEXTROPROPOXYPHENE NAPSILATE, PARACETAMOL) [Concomitant]
  3. GLEEVEC [Suspect]
     Indication: MYELOID LEUKAEMIA
     Dosage: ORAL ; 200 MG, QD, ORAL
     Route: 048
     Dates: start: 20090301

REACTIONS (8)
  - DIZZINESS [None]
  - CONSTIPATION [None]
  - BLOOD PRESSURE DECREASED [None]
  - WEIGHT DECREASED [None]
  - FLUSHING [None]
  - DIARRHOEA [None]
  - HICCUPS [None]
  - DECREASED APPETITE [None]
